FAERS Safety Report 10080521 (Version 1)
Quarter: 2014Q2

REPORT INFORMATION
  Report Type: Spontaneous
  Country: BR (occurrence: BR)
  Receive Date: 20140416
  Receipt Date: 20140416
  Transmission Date: 20141212
  Serious: Yes (Other)
  Sender: FDA-Public Use
  Company Number: BR-AMGEN INC.-BRASP2014027560

PATIENT
  Age: 42 Year
  Sex: Male
  Weight: 88 kg

DRUGS (5)
  1. ENBREL [Suspect]
     Indication: PSORIATIC ARTHROPATHY
     Dosage: 50 MG, 1X/WEEK
     Route: 058
     Dates: start: 201206, end: 201312
  2. CARBOLITIUM [Concomitant]
     Dosage: 4X/DAY
  3. DEPAKENE                           /00228501/ [Concomitant]
     Dosage: 1
  4. CARBAMAZEPINE [Concomitant]
     Dosage: 1
  5. SIMVASTATIN [Concomitant]
     Dosage: AT NIGHT

REACTIONS (4)
  - Diabetes mellitus [Unknown]
  - Dyslipidaemia [Unknown]
  - Helicobacter gastritis [Unknown]
  - Gastrointestinal bacterial infection [Unknown]
